FAERS Safety Report 9886606 (Version 3)
Quarter: 2014Q1

REPORT INFORMATION
  Report Type: Spontaneous
  Country: US (occurrence: US)
  Receive Date: 20140210
  Receipt Date: 20140313
  Transmission Date: 20141002
  Serious: Yes (Hospitalization)
  Sender: FDA-Public Use
  Company Number: US-INCYTE CORPORATION-2014IN000297

PATIENT
  Age: 90 Year
  Sex: Male

DRUGS (1)
  1. JAKAFI [Suspect]
     Dosage: 10 MG, BID
     Route: 048
     Dates: start: 20130227, end: 201312

REACTIONS (3)
  - Hospitalisation [Recovered/Resolved]
  - Renal disorder [Recovering/Resolving]
  - Blood potassium increased [Recovering/Resolving]
